FAERS Safety Report 10466434 (Version 10)
Quarter: 2015Q4

REPORT INFORMATION
  Report Type: Spontaneous
  Country: BR (occurrence: BR)
  Receive Date: 20140922
  Receipt Date: 20151204
  Transmission Date: 20160304
  Serious: Yes (Hospitalization, Other)
  Sender: FDA-Public Use
  Company Number: BR-SA-2014SA125339

PATIENT
  Age: 49 Year
  Sex: Female
  Weight: 60 kg

DRUGS (8)
  1. CLIKSTAR [Suspect]
     Active Substance: CLIKSTAR
     Indication: DEVICE THERAPY
     Dates: start: 2010
  2. APIDRA [Suspect]
     Active Substance: INSULIN GLULISINE
     Indication: TYPE 1 DIABETES MELLITUS
     Dosage: DOSE 2-4 UNITS
     Route: 065
     Dates: start: 2010
  3. INSULIN PEN NOS [Suspect]
     Active Substance: INSULIN NOS
     Indication: DEVICE THERAPY
  4. CLOPIDOGREL [Concomitant]
     Active Substance: CLOPIDOGREL BISULFATE
     Indication: CATHETER PLACEMENT
     Route: 048
     Dates: start: 201306
  5. CLOPIDOGREL [Concomitant]
     Active Substance: CLOPIDOGREL BISULFATE
     Indication: PERIPHERAL VASCULAR DISORDER
     Route: 048
     Dates: start: 201306
  6. LOSARTAN. [Concomitant]
     Active Substance: LOSARTAN
     Indication: HYPERTENSION
     Route: 048
     Dates: start: 2012
  7. VASOGARD [Concomitant]
     Active Substance: CILOSTAZOL
     Indication: PERIPHERAL VASCULAR DISORDER
     Route: 048
     Dates: start: 2010
  8. LANTUS [Suspect]
     Active Substance: INSULIN GLARGINE
     Indication: TYPE 1 DIABETES MELLITUS
     Dosage: DOSE:42 TO 44 IU
     Route: 065
     Dates: start: 201007

REACTIONS (20)
  - Abasia [Recovered/Resolved]
  - Eye haemorrhage [Not Recovered/Not Resolved]
  - Wound infection [Recovering/Resolving]
  - Hyperglycaemia [Recovered/Resolved]
  - Injection site swelling [Recovered/Resolved]
  - Musculoskeletal disorder [Not Recovered/Not Resolved]
  - Pyrexia [Recovered/Resolved]
  - Pain in extremity [Recovered/Resolved]
  - Chills [Recovered/Resolved]
  - Angioplasty [Unknown]
  - Toe amputation [Recovered/Resolved]
  - Feeling hot [Recovered/Resolved]
  - Limb injury [Recovered/Resolved]
  - Blindness [Recovering/Resolving]
  - Arterial occlusive disease [Unknown]
  - Vision blurred [Not Recovered/Not Resolved]
  - Injection site pain [Recovered/Resolved]
  - Localised infection [Recovered/Resolved]
  - Hallucination [Recovered/Resolved]
  - Injection site haematoma [Recovered/Resolved]

NARRATIVE: CASE EVENT DATE: 2013
